FAERS Safety Report 20572803 (Version 2)
Quarter: 2022Q1

REPORT INFORMATION
  Report Type: Spontaneous
  Country: US (occurrence: US)
  Receive Date: 20220309
  Receipt Date: 20220328
  Transmission Date: 20220424
  Serious: No
  Sender: FDA-Public Use
  Company Number: US-JNJFOC-20220314087

PATIENT
  Sex: Male

DRUGS (1)
  1. REMICADE [Suspect]
     Active Substance: INFLIXIMAB
     Indication: Psoriatic arthropathy
     Dosage: DECREASING THE DOSAGE INTERVALS FROM 8 TO 6 WEEKS FOR REMICADE
     Route: 042

REACTIONS (1)
  - Therapeutic response decreased [Unknown]
